FAERS Safety Report 5525207-1 (Version None)
Quarter: 2007Q4

REPORT INFORMATION
  Report Type: 
  Country: None (occurrence: None)
  Receive Date: 20071126
  Receipt Date: 20071113
  Transmission Date: 20080405
  Serious: Yes (Hospitalization)
  Sender: FDA-Public Use
  Company Number: JP-BRISTOL-MYERS SQUIBB COMPANY-13988399

PATIENT
  Age: 26 Year
  Sex: Female

DRUGS (5)
  1. REYATAZ [Suspect]
     Indication: HIV INFECTION
     Route: 048
     Dates: start: 20060808
  2. NORVIR [Suspect]
     Indication: HIV INFECTION
     Route: 048
     Dates: start: 20060808
  3. COMBIVIR [Suspect]
     Indication: HIV INFECTION
     Route: 048
     Dates: start: 20060808, end: 20070314
  4. BENAMBAX [Concomitant]
     Route: 055
     Dates: start: 20060803, end: 20070920
  5. BACTRIM [Concomitant]
     Route: 048
     Dates: start: 20060921

REACTIONS (1)
  - CYTOMEGALOVIRUS CHORIORETINITIS [None]
